FAERS Safety Report 15890833 (Version 1)
Quarter: 2019Q1

REPORT INFORMATION
  Report Type: Spontaneous
  Country: FR (occurrence: FR)
  Receive Date: 20190130
  Receipt Date: 20190130
  Transmission Date: 20190417
  Serious: Yes (Hospitalization)
  Sender: FDA-Public Use
  Company Number: FR-TEVA-2019-FR-1004257

PATIENT
  Age: 73 Year
  Sex: Female
  Weight: 73.5 kg

DRUGS (7)
  1. KARDEGIC [Concomitant]
     Active Substance: ASPIRIN DL-LYSINE
  2. ATENOLOL. [Concomitant]
     Active Substance: ATENOLOL
  3. COLCHICINE. [Concomitant]
     Active Substance: COLCHICINE
  4. PREDNISOLONE. [Suspect]
     Active Substance: PREDNISOLONE
     Indication: BACK PAIN
     Dosage: 60 MILLIGRAM DAILY;
     Route: 048
     Dates: start: 201811, end: 201811
  5. MICARDIS [Concomitant]
     Active Substance: TELMISARTAN
  6. IXPRIM [Suspect]
     Active Substance: ACETAMINOPHEN\TRAMADOL HYDROCHLORIDE
     Indication: BACK PAIN
     Route: 048
     Dates: start: 20181110, end: 20181111
  7. FLUDEX 1,5 MG, COMPRIM? PELLICUL? ? LIB?RATION PROLONG?E [Concomitant]
     Active Substance: INDAPAMIDE

REACTIONS (3)
  - Confusional state [Recovered/Resolved]
  - Hypertensive crisis [Recovered/Resolved]
  - Coma [Recovered/Resolved]

NARRATIVE: CASE EVENT DATE: 20181111
